FAERS Safety Report 8623646-3 (Version None)
Quarter: 2012Q3

REPORT INFORMATION
  Report Type: 
  Country: None (occurrence: None)
  Receive Date: 20120827
  Receipt Date: 20120822
  Transmission Date: 20120928
  Serious: No
  Sender: FDA-Public Use
  Company Number: US-PFIZER INC-2012207294

PATIENT
  Age: 67 Year
  Sex: Female
  Weight: 77.098 kg

DRUGS (3)
  1. CELEBREX [Concomitant]
     Indication: ARTHRITIS
     Dosage: 200 MG,DAILY
     Dates: start: 20110101
  2. LYRICA [Suspect]
     Indication: FIBROMYALGIA
     Dosage: 100 MG,DAILY
     Dates: start: 20120701, end: 20120822
  3. TRIAMTERENE [Suspect]
     Indication: OEDEMA PERIPHERAL
     Dosage: 37.5 MG,DAILY
     Dates: start: 20120726, end: 20120801

REACTIONS (2)
  - MUSCLE SPASMS [None]
  - OEDEMA PERIPHERAL [None]
